FAERS Safety Report 5517177-7 (Version None)
Quarter: 2007Q4

REPORT INFORMATION
  Report Type: 
  Country: None (occurrence: None)
  Receive Date: 20071114
  Receipt Date: 20071101
  Transmission Date: 20080405
  Serious: No
  Sender: FDA-Public Use
  Company Number: A0670517A

PATIENT
  Age: 36 Year
  Sex: Male

DRUGS (2)
  1. COMMIT [Suspect]
     Indication: DRUG USE FOR UNKNOWN INDICATION
     Dates: start: 20070809, end: 20070813
  2. WELLBUTRIN XL [Concomitant]
     Indication: DEPRESSION
     Dosage: 150MG PER DAY

REACTIONS (6)
  - CANDIDIASIS [None]
  - DYSPHAGIA [None]
  - GLOSSODYNIA [None]
  - PHARYNGEAL OEDEMA [None]
  - PHARYNGOLARYNGEAL PAIN [None]
  - TONSILLAR DISORDER [None]
